FAERS Safety Report 8686902 (Version 3)
Quarter: 2012Q4

REPORT INFORMATION
  Report Type: 
  Country: US (occurrence: US)
  Receive Date: 20120727
  Receipt Date: 20121004
  Transmission Date: 20130627
  Serious: No
  Sender: FDA-Public Use
  Company Number: US-PFIZER INC-2012179894

PATIENT
  Age: 54 Year
  Sex: Female

DRUGS (2)
  1. XALKORI [Suspect]
     Indication: LUNG NEOPLASM MALIGNANT
     Dosage: 250 mg, 2x/day
     Dates: start: 20110927
  2. XALKORI [Suspect]
     Dosage: 250 mg, UNK
     Dates: start: 20120625

REACTIONS (6)
  - Disease progression [Unknown]
  - Lung neoplasm malignant [Unknown]
  - Visual acuity reduced [Unknown]
  - Photopsia [Unknown]
  - Vision blurred [Unknown]
  - Dizziness [Unknown]
